FAERS Safety Report 9263931 (Version 1)
Quarter: 2013Q2

REPORT INFORMATION
  Report Type: Spontaneous
  Country: NO (occurrence: NO)
  Receive Date: 20130430
  Receipt Date: 20130430
  Transmission Date: 20140414
  Serious: Yes (Other)
  Sender: FDA-Public Use
  Company Number: NO-WATSON-2013-07517

PATIENT
  Sex: Female

DRUGS (3)
  1. LEVETIRACETAM (UNKNOWN) [Suspect]
     Indication: EPILEPSY
     Dosage: UNK
     Route: 065
  2. TOPIRAMATE (UNKNOWN) [Suspect]
     Indication: EPILEPSY
     Route: 065
  3. TEGRETOL [Suspect]
     Indication: EPILEPSY
     Dosage: 1200 MG, DAILY
     Route: 065

REACTIONS (2)
  - Abortion spontaneous [Unknown]
  - Maternal exposure during pregnancy [Unknown]
